FAERS Safety Report 6239893-4 (Version None)
Quarter: 2009Q2

REPORT INFORMATION
  Report Type: 
  Country: None (occurrence: None)
  Receive Date: 20090623
  Receipt Date: 20090616
  Transmission Date: 20091009
  Serious: Yes (Disabling)
  Sender: FDA-Public Use
  Company Number: BR-ELI_LILLY_AND_COMPANY-BR200906003924

PATIENT
  Sex: Female
  Weight: 65 kg

DRUGS (10)
  1. HUMULIN N [Suspect]
     Dosage: UNK, UNKNOWN
     Route: 058
     Dates: start: 19990101
  2. GABAPENTIN [Concomitant]
     Dosage: 300 MG, DAILY (1/D)
     Route: 048
  3. NIMODIPINA [Concomitant]
     Dosage: 30 MG, 2/D
     Route: 048
  4. MONOCORDIL [Concomitant]
     Dosage: UNK, UNKNOWN
     Route: 065
  5. AAS [Concomitant]
     Dosage: UNK, UNKNOWN
     Route: 065
  6. METFORMIN HCL [Concomitant]
     Dosage: 850 MG, UNKNOWN
     Route: 065
  7. LORAX [Concomitant]
     Dosage: UNK, UNKNOWN
     Route: 065
  8. DIPIRONA [Concomitant]
     Dosage: UNK, UNKNOWN
     Route: 065
  9. ANCORON [Concomitant]
     Dosage: UNK, UNKNOWN
     Route: 065
  10. NOVOLIN [Concomitant]
     Dosage: UNK, UNKNOWN
     Route: 065

REACTIONS (2)
  - BEDRIDDEN [None]
  - PRURITUS GENERALISED [None]
